FAERS Safety Report 10718534 (Version 1)
Quarter: 2015Q1

REPORT INFORMATION
  Report Type: Spontaneous
  Country: US (occurrence: US)
  Receive Date: 20150119
  Receipt Date: 20150119
  Transmission Date: 20150721
  Serious: No
  Sender: FDA-Public Use
  Company Number: US-DRREDDYS-USA/USA/14/0044242

PATIENT
  Sex: Male
  Weight: 69.3 kg

DRUGS (1)
  1. ZENATANE [Suspect]
     Active Substance: ISOTRETINOIN
     Indication: ACNE
     Route: 048
     Dates: start: 201409

REACTIONS (4)
  - Epistaxis [Not Recovered/Not Resolved]
  - Chapped lips [Recovering/Resolving]
  - Nasal dryness [Not Recovered/Not Resolved]
  - Lip dry [Recovering/Resolving]
